FAERS Safety Report 8068751-8 (Version None)
Quarter: 2012Q1

REPORT INFORMATION
  Report Type: 
  Country: None (occurrence: None)
  Receive Date: 20120124
  Receipt Date: 20111215
  Transmission Date: 20120608
  Serious: No
  Sender: FDA-Public Use
  Company Number: US-AMGEN-USASP2011048071

PATIENT
  Age: 76 Year
  Sex: Female
  Weight: 70.295 kg

DRUGS (12)
  1. PROLIA [Suspect]
     Indication: OSTEOPOROSIS POSTMENOPAUSAL
     Dosage: 60 MG, Q6MO
     Route: 030
     Dates: start: 20110914
  2. VITAMIN TAB [Concomitant]
  3. PREMARIN [Concomitant]
  4. OMEPRAZOLE [Concomitant]
     Dosage: 40 MG, UNK
  5. ELMIRON [Concomitant]
  6. SYNTHROID [Concomitant]
     Indication: HYPOTHYROIDISM
     Dosage: 75 MUG, UNK
  7. VICODIN ES [Concomitant]
     Dosage: UNK
  8. ARICEPT [Concomitant]
     Dosage: 10 MG, UNK
  9. IBUPROFEN [Concomitant]
  10. HYDROCHLOROTHIAZIDE [Concomitant]
     Dosage: 25 MG, UNK
  11. SIMVASTATIN [Concomitant]
     Dosage: 80 MG, UNK
  12. XANAX [Concomitant]
     Dosage: 1 MG, UNK

REACTIONS (8)
  - TINNITUS [None]
  - MUSCLE SPASMS [None]
  - IMPAIRED HEALING [None]
  - DIZZINESS [None]
  - MICTURITION URGENCY [None]
  - CHILLS [None]
  - PAIN IN EXTREMITY [None]
  - OROPHARYNGEAL PAIN [None]
